FAERS Safety Report 5263014-8 (Version None)
Quarter: 2007Q1

REPORT INFORMATION
  Report Type: 
  Country: None (occurrence: None)
  Receive Date: 20070308
  Receipt Date: 20070221
  Transmission Date: 20070707
  Serious: Yes (Other)
  Sender: FDA-Public Use
  Company Number: 112068ISR

PATIENT
  Age: 33 Year
  Sex: Female

DRUGS (3)
  1. METFORMIN HCL [Suspect]
     Indication: DIABETES MELLITUS
     Dosage: 2 GRAM (1 GRAM, TWICE A DAY) ORAL
     Route: 048
  2. PREDNISOLONE [Suspect]
     Indication: UVEITIS
  3. PIOGLITAZONE HCL [Suspect]
     Dosage: 45 MG (45 MG,ONCE A DAY

REACTIONS (4)
  - DIABETES MELLITUS INADEQUATE CONTROL [None]
  - MACULAR OEDEMA [None]
  - RETINAL ANEURYSM [None]
  - UVEITIS [None]
